FAERS Safety Report 5418453-9 (Version None)
Quarter: 2007Q3

REPORT INFORMATION
  Report Type: 
  Country: None (occurrence: None)
  Receive Date: 20070817
  Receipt Date: 20070813
  Transmission Date: 20080115
  Serious: Yes (Hospitalization)
  Sender: FDA-Public Use
  Company Number: US-ROXANE LABORATORIES, INC-2007-BP-19121RO

PATIENT
  Age: 73 Year
  Sex: Female

DRUGS (6)
  1. PREDNISONE TAB [Suspect]
     Indication: DIFFUSE LARGE B-CELL LYMPHOMA
     Dosage: 100 MG/DAY; DAY 1 THRU 5 EVERY 21 DAYS
     Route: 048
     Dates: start: 20070724
  2. ENZASTAURIN (LY317615) REGIMEN # 1 [Suspect]
     Indication: DIFFUSE LARGE B-CELL LYMPHOMA
     Route: 048
     Dates: start: 20070725, end: 20070725
  3. ENZASTAURIN (LY317615) REGIMEN # 2 [Suspect]
     Indication: DIFFUSE LARGE B-CELL LYMPHOMA
     Route: 048
     Dates: start: 20070726
  4. CYCLOPHOSPHAMIDE [Suspect]
     Indication: DIFFUSE LARGE B-CELL LYMPHOMA
     Dosage: 750 MG/M2; DAY 1 OF EVERY CYCLE (Q 21 DAY CYCLE)
     Route: 042
     Dates: start: 20070724
  5. DOXORUBICIN [Suspect]
     Indication: DIFFUSE LARGE B-CELL LYMPHOMA
     Dosage: 50 MG/M2,  DAY 1 OF EVERY CYCLE (Q 21 DAY CYCLE)
     Route: 042
     Dates: start: 20070724
  6. VINCRISTINE [Suspect]
     Indication: DIFFUSE LARGE B-CELL LYMPHOMA
     Dosage: 1.4 MG/M2,  DAY 1 OF EVERY CYCLE (Q 21 DAY CYCLE)
     Route: 042
     Dates: start: 20070724

REACTIONS (1)
  - NEUTROPENIC SEPSIS [None]
